FAERS Safety Report 8855166 (Version 1)
Quarter: 2012Q4

REPORT INFORMATION
  Report Type: 
  Country: US (occurrence: US)
  Receive Date: 20121023
  Receipt Date: 20121023
  Transmission Date: 20130627
  Serious: No
  Sender: FDA-Public Use
  Company Number: US-AMGEN-USASP2012059867

PATIENT
  Sex: Female
  Weight: 78.46 kg

DRUGS (11)
  1. ENBREL [Suspect]
     Indication: PRODUCT USED FOR UNKNOWN INDICATION
     Dosage: 50 mg, qwk
     Route: 058
  2. VITAMIN C                          /00008001/ [Concomitant]
     Dosage: 500 mg, UNK
  3. OMEGA 3                            /01334101/ [Concomitant]
     Dosage: 1000 mg, UNK
  4. CALCIUM + VIT D [Concomitant]
     Dosage: UNK
  5. WELLBUTRIN [Concomitant]
     Dosage: 100 mg, UNK
  6. TRAZODONE [Concomitant]
     Dosage: 50 mg, UNK
  7. XANAX [Concomitant]
     Dosage: 1 mg, UNK
  8. MELOXICAM [Concomitant]
     Dosage: 15 mg, UNK
  9. NEURONTIN [Concomitant]
     Dosage: 300 mg, UNK
  10. METHOTREXATE [Concomitant]
     Dosage: 2.5 mg, UNK
  11. VITAMIN D3 [Concomitant]
     Dosage: 2000 unit, UNK

REACTIONS (2)
  - Injection site pain [Unknown]
  - Headache [Unknown]
